FAERS Safety Report 15181136 (Version 1)
Quarter: 2018Q3

REPORT INFORMATION
  Report Type: Spontaneous
  Country: DK (occurrence: DK)
  Receive Date: 20180723
  Receipt Date: 20180723
  Transmission Date: 20181010
  Serious: Yes (Hospitalization)
  Sender: FDA-Public Use
  Company Number: DK-NOVOPROD-610830

PATIENT
  Age: 71 Year
  Sex: Male

DRUGS (8)
  1. LANTUS [Suspect]
     Active Substance: INSULIN GLARGINE
     Indication: DIABETES MELLITUS
     Dosage: 4 IU, QD
     Route: 058
     Dates: start: 20161026
  2. MAREVAN [Concomitant]
     Active Substance: WARFARIN SODIUM
     Indication: ANTICOAGULANT THERAPY
     Dosage: AFTER WRITTEN INSTRUCTION. STRENGTH: 2.5 MG
     Route: 048
     Dates: start: 20180122
  3. FUROSEMID ACCORD [Concomitant]
     Indication: HYPERTENSION
     Dosage: 40 MG, QD
     Route: 048
     Dates: start: 20130103
  4. METOPROLOL TARTRATE. [Concomitant]
     Active Substance: METOPROLOL TARTRATE
     Indication: HYPERTENSION
     Dosage: 100 MG, QD
     Route: 048
     Dates: start: 20180528
  5. CIALIS [Concomitant]
     Active Substance: TADALAFIL
     Indication: ERECTILE DYSFUNCTION
     Dosage: 20 MG (1 TABLET 1/2 HOUR BEFORE EFFECT IS DESIRED)
     Route: 048
     Dates: start: 20130319
  6. AMLODIPIN ACTAVIS                  /00972402/ [Concomitant]
     Active Substance: AMLODIPINE BESYLATE
     Indication: HYPERTENSION
     Dosage: 10 MG, QD
     Route: 048
     Dates: start: 20180816
  7. NOVORAPID [Suspect]
     Active Substance: INSULIN ASPART
     Indication: DIABETES MELLITUS
     Dosage: 12 IU, QD (3 TIMES DAILY)
     Route: 058
     Dates: start: 20121126
  8. MUSE [Concomitant]
     Active Substance: ALPROSTADIL
     Indication: ERECTILE DYSFUNCTION
     Dosage: 1 DF ,1 APPLICATION DOSE AS NEEDED, MAXIMUM 2 TIMES DAILY, STRENGTH: 1000 ?G
     Route: 066
     Dates: start: 20150203

REACTIONS (3)
  - Cold sweat [Recovering/Resolving]
  - Somnolence [Recovering/Resolving]
  - Hypoglycaemia [Recovered/Resolved]

NARRATIVE: CASE EVENT DATE: 201806
